FAERS Safety Report 8833819 (Version 1)
Quarter: 2012Q4

REPORT INFORMATION
  Report Type: 
  Country: US (occurrence: US)
  Receive Date: 20121011
  Receipt Date: 20121011
  Transmission Date: 20130627
  Serious: Yes (Hospitalization)
  Sender: FDA-Public Use
  Company Number: US-MERCK-1210USA003533

PATIENT
  Sex: Male

DRUGS (7)
  1. PEGINTRON [Suspect]
     Dosage: 150mcg/0.5ml, qw
     Route: 058
  2. TELAPREVIR [Suspect]
     Dosage: UNK
     Route: 048
     Dates: start: 20120326
  3. RIBAPAK [Suspect]
     Route: 048
  4. NADOLOL [Concomitant]
  5. LOVAZA [Concomitant]
  6. POTASSIUM (UNSPECIFIED) [Concomitant]
  7. VITAMIN D (UNSPECIFIED) [Concomitant]

REACTIONS (3)
  - Peripheral embolism [Unknown]
  - Anaemia [Unknown]
  - Urinary tract infection [Unknown]
